FAERS Safety Report 18528882 (Version 1)
Quarter: 2020Q4

REPORT INFORMATION
  Report Type: Spontaneous
  Country: US (occurrence: US)
  Receive Date: 20201120
  Receipt Date: 20201120
  Transmission Date: 20210114
  Serious: No
  Sender: FDA-Public Use
  Company Number: US-PFIZER INC-2020457229

PATIENT
  Age: 86 Year
  Sex: Male

DRUGS (1)
  1. ADVIL [Suspect]
     Active Substance: IBUPROFEN
     Indication: PAIN IN EXTREMITY
     Dosage: 600 MG, 3X/DAY (9 PILLS A DAY, 3 AT EACH MEAL, 1800 MG FOR 7 DAYS)

REACTIONS (2)
  - Bowel movement irregularity [Unknown]
  - Expired product administered [Unknown]
